FAERS Safety Report 7170377-5 (Version None)
Quarter: 2010Q4

REPORT INFORMATION
  Report Type: 
  Country: None (occurrence: None)
  Receive Date: 20101217
  Receipt Date: 20101012
  Transmission Date: 20110411
  Serious: No
  Sender: FDA-Public Use
  Company Number: A0886140A

PATIENT
  Age: 55 Year
  Sex: Female

DRUGS (4)
  1. PROMACTA [Suspect]
     Indication: IDIOPATHIC THROMBOCYTOPENIC PURPURA
     Dosage: 1TAB SINGLE DOSE
     Route: 048
     Dates: start: 20100922, end: 20100922
  2. METOPROLOL [Concomitant]
  3. SYNTHROID [Concomitant]
  4. FOSAMAX [Concomitant]

REACTIONS (5)
  - FLUSHING [None]
  - FORMICATION [None]
  - PRURITUS [None]
  - SWELLING [None]
  - SWOLLEN TONGUE [None]
